FAERS Safety Report 6423301-4 (Version None)
Quarter: 2009Q4

REPORT INFORMATION
  Report Type: 
  Country: None (occurrence: None)
  Receive Date: 20091028
  Receipt Date: 20091015
  Transmission Date: 20100525
  Serious: Yes (Other)
  Sender: FDA-Public Use
  Company Number: DE-1169667

PATIENT
  Age: 80 Year
  Sex: Female

DRUGS (1)
  1. FLUORESCITE [Suspect]
     Indication: ANGIOGRAM RETINA
     Dosage: 5 ML OVER 8-15 SECONDS INTRAVENOUS BOLUS
     Route: 040
     Dates: start: 20090506

REACTIONS (5)
  - ARRHYTHMIA [None]
  - CIRCULATORY COLLAPSE [None]
  - HYPERTENSION [None]
  - IMMEDIATE POST-INJECTION REACTION [None]
  - SYNCOPE [None]
